FAERS Safety Report 4674220-5 (Version None)
Quarter: 2005Q2

REPORT INFORMATION
  Report Type: 
  Country: None (occurrence: None)
  Receive Date: 20050526
  Receipt Date: 20050518
  Transmission Date: 20051028
  Serious: Yes (Life-Threatening, Hospitalization)
  Sender: FDA-Public Use
  Company Number: PHBS2005GR07168

PATIENT
  Age: 60 Year
  Sex: Male

DRUGS (6)
  1. MEXILETINE HCL [Concomitant]
     Indication: VENTRICULAR TACHYCARDIA
     Dosage: 600 MG, QD
     Route: 048
  2. AMIODARONE [Concomitant]
     Dosage: 1200 MG, QD
     Route: 048
  3. AMIODARONE [Concomitant]
     Dosage: 40 MG/H, UNK
  4. LIDOCAINE [Concomitant]
     Dosage: 300 MG, UNK
     Route: 042
  5. METOPROLOL [Suspect]
     Indication: VENTRICULAR TACHYCARDIA
     Dosage: 12.5 MG, QD
  6. METOPROLOL [Suspect]
     Dosage: 200 MG, QD

REACTIONS (2)
  - LOSS OF CONSCIOUSNESS [None]
  - VENTRICULAR TACHYCARDIA [None]
